FAERS Safety Report 14939524 (Version 1)
Quarter: 2018Q2

REPORT INFORMATION
  Report Type: Spontaneous
  Country: US (occurrence: US)
  Receive Date: 20180525
  Receipt Date: 20180525
  Transmission Date: 20180711
  Serious: Yes (Death)
  Sender: FDA-Public Use
  Company Number: US-AKRON, INC.-2048470

PATIENT
  Age: 57 Year
  Sex: Male

DRUGS (2)
  1. CLOBETASOL PROPIONATE CREAM, USP [Suspect]
     Active Substance: CLOBETASOL PROPIONATE
     Indication: PSORIASIS
     Route: 061
     Dates: start: 20150225
  2. CALCIPOTRIENE. [Suspect]
     Active Substance: CALCIPOTRIENE

REACTIONS (6)
  - Infection [Fatal]
  - Chemical burn [Fatal]
  - Delusional perception [Fatal]
  - Death [Fatal]
  - Coma [Fatal]
  - Blister [Fatal]
